FAERS Safety Report 16756370 (Version 4)
Quarter: 2019Q4

REPORT INFORMATION
  Report Type: Spontaneous
  Country: US (occurrence: US)
  Receive Date: 20190829
  Receipt Date: 20191203
  Transmission Date: 20200122
  Serious: Yes (Other)
  Sender: FDA-Public Use
  Company Number: US-CELGENEUS-USA-20190808916

PATIENT
  Age: 68 Year
  Sex: Female

DRUGS (1)
  1. OTEZLA [Suspect]
     Active Substance: APREMILAST
     Indication: PSORIASIS
     Dosage: 60 MILLIGRAM
     Route: 048
     Dates: start: 201810, end: 20190822

REACTIONS (6)
  - Diarrhoea [Unknown]
  - Haemorrhoids [Unknown]
  - Psoriasis [Unknown]
  - Rectal haemorrhage [Recovered/Resolved]
  - Haematochezia [Unknown]
  - Weight decreased [Unknown]

NARRATIVE: CASE EVENT DATE: 20190821
